FAERS Safety Report 14968484 (Version 1)
Quarter: 2018Q2

REPORT INFORMATION
  Report Type: Spontaneous
  Country: US (occurrence: US)
  Receive Date: 20180511
  Receipt Date: 20180511
  Transmission Date: 20180711
  Serious: Yes (Death)
  Sender: FDA-Public Use
  Company Number: None

PATIENT
  Age: 61 Year
  Sex: Male
  Weight: 65.25 kg

DRUGS (2)
  1. DURVALUMAB. [Suspect]
     Active Substance: DURVALUMAB
     Indication: TRANSITIONAL CELL CARCINOMA
     Dosage: ?          OTHER FREQUENCY:EVERY 28 DAYS;?
     Route: 041
     Dates: start: 20180411, end: 20180411
  2. DURVALUMAB. [Concomitant]
     Active Substance: DURVALUMAB
     Dates: start: 20180411, end: 20180411

REACTIONS (1)
  - Cardio-respiratory arrest [None]

NARRATIVE: CASE EVENT DATE: 20180414
